FAERS Safety Report 9186946 (Version 2)
Quarter: 2013Q3

REPORT INFORMATION
  Report Type: Spontaneous
  Country: BR (occurrence: BR)
  Receive Date: 20130325
  Receipt Date: 20130829
  Transmission Date: 20140515
  Serious: Yes (Other)
  Sender: FDA-Public Use
  Company Number: PHHY2013BR028450

PATIENT
  Sex: Female

DRUGS (1)
  1. TEGRETOL CR [Suspect]
     Dosage: UNK UKN, UNK

REACTIONS (1)
  - Convulsion [Unknown]
